FAERS Safety Report 19500517 (Version 1)
Quarter: 2021Q3

REPORT INFORMATION
  Report Type: Spontaneous
  Country: US (occurrence: US)
  Receive Date: 20210702
  Receipt Date: 20210702
  Transmission Date: 20211014
  Serious: No
  Sender: FDA-Public Use
  Company Number: None

PATIENT
  Age: 88 Year
  Sex: Female
  Weight: 86.18 kg

DRUGS (1)
  1. STELARA [Suspect]
     Active Substance: USTEKINUMAB
     Indication: PSORIASIS
     Dosage: INJECT 45MG SUBCUTANEOUSLY AT WEEK 4 THEN INJECT EVERY 12 WEEKS THEREAFTER.
     Route: 058
     Dates: start: 201709

REACTIONS (2)
  - Unevaluable event [None]
  - Haemorrhoids [None]
